FAERS Safety Report 9981324 (Version 1)
Quarter: 2014Q1

REPORT INFORMATION
  Report Type: Spontaneous
  Country: US (occurrence: None)
  Receive Date: 20140305
  Receipt Date: 20140305
  Transmission Date: 20141002
  Serious: Yes (Other)
  Sender: FDA-Public Use
  Company Number: SYM-2014-17621

PATIENT
  Age: 71 Year
  Sex: Male
  Weight: 72.58 kg

DRUGS (3)
  1. XENAZINE (TETRABENAZINE) (12.5 MILLIGRAM, TABLETS) (TETRABENAZINE) [Suspect]
     Indication: TOURETTE^S DISORDER
     Route: 048
     Dates: start: 20140127
  2. XENAZINE (TETRABENAZINE) (12.5 MILLIGRAM, TABLETS) (TETRABENAZINE) [Suspect]
     Indication: OFF LABEL USE
     Route: 048
     Dates: start: 20140127
  3. XENAZINE (TETRABENAZINE) (12.5 MILLIGRAM, TABLETS) (TETRABENAZINE) [Suspect]
     Indication: TIC
     Route: 048
     Dates: start: 20140127

REACTIONS (6)
  - Nightmare [None]
  - Agitation [None]
  - Dyspnoea [None]
  - Dizziness [None]
  - Intentional self-injury [None]
  - Drug ineffective [None]
